FAERS Safety Report 9355940 (Version 1)
Quarter: 2013Q2

REPORT INFORMATION
  Report Type: Spontaneous
  Country: US (occurrence: US)
  Receive Date: 20130619
  Receipt Date: 20130619
  Transmission Date: 20140414
  Serious: Yes (Hospitalization, Other)
  Sender: FDA-Public Use
  Company Number: US-TEVA-413109USA

PATIENT
  Age: 26 Year
  Sex: Male

DRUGS (5)
  1. CLONIDINE [Suspect]
     Indication: DRUG DETOXIFICATION
  2. PROPOFOL [Suspect]
     Indication: DRUG DETOXIFICATION
  3. NITROUS OXIDE [Suspect]
     Indication: DRUG DETOXIFICATION
  4. INHALATIONAL ANAESTHETIC [Suspect]
     Indication: DRUG DETOXIFICATION
  5. NALOXONE [Suspect]
     Indication: DRUG DETOXIFICATION

REACTIONS (3)
  - Cardiac arrest [Recovered/Resolved]
  - Pulseless electrical activity [Recovered/Resolved]
  - Necrotising fasciitis [Unknown]
